FAERS Safety Report 5076002-1 (Version None)
Quarter: 2006Q3

REPORT INFORMATION
  Report Type: 
  Country: None (occurrence: None)
  Receive Date: 20060808
  Receipt Date: 20060808
  Transmission Date: 20061208
  Serious: Yes (Hospitalization)
  Sender: FDA-Public Use
  Company Number: None

PATIENT
  Age: 60 Year
  Sex: Male
  Weight: 65.8 kg

DRUGS (1)
  1. ACETAMINOPHEN [Suspect]
     Dosage: PO
     Route: 048

REACTIONS (11)
  - CARDIAC DISORDER [None]
  - DEHYDRATION [None]
  - DIZZINESS POSTURAL [None]
  - DYSPNOEA EXERTIONAL [None]
  - FATIGUE [None]
  - HYPERTENSION [None]
  - MULTIPLE DRUG OVERDOSE INTENTIONAL [None]
  - NAUSEA [None]
  - PANCYTOPENIA [None]
  - PERICARDIAL EFFUSION [None]
  - VOMITING [None]
